FAERS Safety Report 6109548-5 (Version None)
Quarter: 2009Q1

REPORT INFORMATION
  Report Type: 
  Country: None (occurrence: None)
  Receive Date: 20090310
  Receipt Date: 20090227
  Transmission Date: 20090719
  Serious: Yes (Hospitalization)
  Sender: FDA-Public Use
  Company Number: CA-ASTRAZENECA-2009UW05273

PATIENT
  Age: 52 Year
  Sex: Female
  Weight: 50 kg

DRUGS (1)
  1. XYLOCAINE [Suspect]
     Dosage: 20 ML 5%
     Route: 049

REACTIONS (4)
  - CARDIAC ARREST [None]
  - DRUG TOXICITY [None]
  - INCORRECT ROUTE OF DRUG ADMINISTRATION [None]
  - OVERDOSE [None]
